FAERS Safety Report 9221739 (Version 1)
Quarter: 2013Q2

REPORT INFORMATION
  Report Type: Spontaneous
  Country: IT (occurrence: None)
  Receive Date: 20130408
  Receipt Date: 20130408
  Transmission Date: 20140414
  Serious: Yes (Hospitalization, Other)
  Sender: FDA-Public Use
  Company Number: GER/ITL/13/0028838

PATIENT
  Age: 85 Year
  Sex: Male

DRUGS (3)
  1. RAMIPRIL (RAMIPRIL) [Suspect]
     Dosage: 1 DOSAGE FORMS, 1 IN 1 D, ORAL
     Route: 048
     Dates: start: 20120227, end: 20130227
  2. COUMADIN (WARFARIN SODIUM) [Suspect]
     Indication: ATRIAL FIBRILLATION
     Route: 048
     Dates: start: 20120227, end: 20130227
  3. DICUMAROL [Suspect]
     Indication: PRODUCT USED FOR UNKNOWN INDICATION

REACTIONS (7)
  - Asthenia [None]
  - Dysarthria [None]
  - Hyperkalaemia [None]
  - Renal failure chronic [None]
  - Cardiac failure [None]
  - Overdose [None]
  - International normalised ratio increased [None]
